FAERS Safety Report 11137515 (Version 2)
Quarter: 2015Q3

REPORT INFORMATION
  Report Type: Spontaneous
  Country: BR (occurrence: BR)
  Receive Date: 20150526
  Receipt Date: 20150708
  Transmission Date: 20151125
  Serious: Yes (Other)
  Sender: FDA-Public Use
  Company Number: BR-ELI_LILLY_AND_COMPANY-BR201505005290

PATIENT
  Age: 66 Year
  Sex: Male

DRUGS (5)
  1. CIALIS [Suspect]
     Active Substance: TADALAFIL
     Indication: URETHRAL STENOSIS
     Dosage: UNK UNK, QOD
     Route: 048
     Dates: start: 201305
  2. CIALIS [Suspect]
     Active Substance: TADALAFIL
     Indication: BLADDER DISORDER
  3. TACROLIMUS. [Concomitant]
     Active Substance: TACROLIMUS
     Dosage: 0.5 DF, EACH EVENING
     Route: 065
  4. TACROLIMUS. [Concomitant]
     Active Substance: TACROLIMUS
     Indication: LIVER TRANSPLANT
     Dosage: 0.5 DF, EACH MORNING
     Route: 065
  5. LAMIVUDINA [Concomitant]
     Active Substance: LAMIVUDINE
     Indication: LIVER TRANSPLANT
     Dosage: 1 DF, QD
     Route: 065

REACTIONS (4)
  - Optic atrophy [Recovering/Resolving]
  - Eye disorder [Unknown]
  - Off label use [Unknown]
  - Inappropriate schedule of drug administration [Unknown]

NARRATIVE: CASE EVENT DATE: 201503
